FAERS Safety Report 8651625 (Version 2)
Quarter: 2012Q4

REPORT INFORMATION
  Report Type: 
  Country: US (occurrence: US)
  Receive Date: 20120706
  Receipt Date: 20121026
  Transmission Date: 20130627
  Serious: Yes (Other)
  Sender: FDA-Public Use
  Company Number: US-BAYER-2012-065121

PATIENT
  Sex: Female
  Weight: 79.37 kg

DRUGS (1)
  1. YAZ [Suspect]
     Dosage: UNK
     Dates: start: 200705, end: 200812

REACTIONS (10)
  - Gallbladder injury [None]
  - Cholelithiasis [None]
  - Abortion spontaneous [None]
  - Pain [None]
  - Fear [None]
  - Injury [None]
  - Pain [None]
  - Ovarian cyst [None]
  - Anxiety [None]
  - Abdominal pain upper [None]
